FAERS Safety Report 7750209-4 (Version None)
Quarter: 2011Q3

REPORT INFORMATION
  Report Type: 
  Country: None (occurrence: None)
  Receive Date: 20110914
  Receipt Date: 20110907
  Transmission Date: 20111222
  Serious: Yes (Other)
  Sender: FDA-Public Use
  Company Number: JP-PFIZER INC-2011196737

PATIENT
  Age: 74 Year
  Sex: Female

DRUGS (3)
  1. VANCOMYCIN HCL [Suspect]
     Indication: STAPHYLOCOCCAL INFECTION
     Dosage: UNK
     Route: 065
     Dates: start: 20110803, end: 20110819
  2. ZYVOX [Suspect]
     Indication: STAPHYLOCOCCAL INFECTION
     Dosage: 1200 MG, PER DAY
     Route: 048
     Dates: start: 20110820
  3. RIFAMPICIN [Concomitant]
     Indication: INTERVERTEBRAL DISCITIS
     Dosage: UNK
     Dates: start: 20110805, end: 20110819

REACTIONS (2)
  - C-REACTIVE PROTEIN INCREASED [None]
  - RENAL IMPAIRMENT [None]
